FAERS Safety Report 8070956-7 (Version None)
Quarter: 2012Q1

REPORT INFORMATION
  Report Type: 
  Country: None (occurrence: None)
  Receive Date: 20120125
  Receipt Date: 20120116
  Transmission Date: 20120608
  Serious: Yes (Death, Life-Threatening)
  Sender: FDA-Public Use
  Company Number: FR-MERCK-1201USA02639

PATIENT
  Age: 87 Year
  Sex: Female

DRUGS (11)
  1. PREVISCAN [Concomitant]
     Route: 048
  2. ZOCOR [Concomitant]
     Route: 048
  3. IRBESARTAN [Suspect]
     Indication: HYPERTENSION
     Route: 065
  4. LOVENOX [Concomitant]
     Dosage: LONG TERM TREATMENT
     Route: 058
  5. PRAVASTATIN SODIUM [Concomitant]
     Dosage: LONG TERM TREATMENT
     Route: 065
     Dates: end: 20111028
  6. NOROXIN [Suspect]
     Indication: URINARY TRACT INFECTION
     Route: 048
     Dates: start: 20111027
  7. LEVOTHYROXINE SODIUM [Concomitant]
     Dosage: LONG TERM TREATMENT TO STOP DATE UNKNOWN
     Route: 048
  8. KETOPROFEN [Suspect]
     Indication: PROCEDURAL PAIN
     Route: 048
     Dates: start: 20111021, end: 20111028
  9. CORDARONE [Concomitant]
     Route: 048
  10. ONE-ALPHA [Concomitant]
     Route: 048
     Dates: end: 20111028
  11. NEXIUM [Concomitant]
     Route: 048

REACTIONS (2)
  - OVERDOSE [None]
  - RENAL FAILURE ACUTE [None]
